FAERS Safety Report 7247815-2 (Version None)
Quarter: 2011Q1

REPORT INFORMATION
  Report Type: 
  Country: None (occurrence: None)
  Receive Date: 20110127
  Receipt Date: 20110120
  Transmission Date: 20110831
  Serious: Yes (Hospitalization, Other)
  Sender: FDA-Public Use
  Company Number: US-PFIZER INC-2011015107

PATIENT
  Sex: Female
  Weight: 48.07 kg

DRUGS (10)
  1. CRESTOR [Suspect]
     Dosage: UNK
  2. LYRICA [Suspect]
     Indication: NERVE INJURY
     Dosage: 75 MG, DAILY
     Route: 048
  3. LEVOTHYROXINE [Concomitant]
     Dosage: 88 UG, UNK
     Route: 048
  4. POTASSIUM CHLORIDE [Concomitant]
     Dosage: 10 MEQ, UNK
  5. BENADRYL [Suspect]
     Dosage: UNK
  6. LYRICA [Suspect]
     Dosage: 75 MG, 2X/DAY
     Route: 048
  7. CARVEDILOL [Concomitant]
     Indication: CARDIAC DISORDER
     Dosage: 3.125 MG, 2X/DAY
     Route: 048
  8. OXYCONTIN [Concomitant]
     Indication: PAIN
     Dosage: 10 MG, 1X/DAY
     Route: 048
  9. TRICOR [Suspect]
     Dosage: UNK
  10. FUROSEMIDE [Concomitant]
     Dosage: 20 MG, AS NEEDED
     Route: 048

REACTIONS (11)
  - CALCINOSIS [None]
  - SOMNOLENCE [None]
  - PAIN IN EXTREMITY [None]
  - ASTHENIA [None]
  - MUSCLE SPASMS [None]
  - RASH GENERALISED [None]
  - ALLERGY TO CHEMICALS [None]
  - EYE DISORDER [None]
  - HEADACHE [None]
  - ERYTHEMA [None]
  - FATIGUE [None]
